FAERS Safety Report 14958153 (Version 1)
Quarter: 2018Q2

REPORT INFORMATION
  Report Type: Spontaneous
  Country: US (occurrence: US)
  Receive Date: 20180509
  Receipt Date: 20180509
  Transmission Date: 20180711
  Serious: Yes (Other)
  Sender: FDA-Public Use
  Company Number: None

PATIENT
  Age: 33 Year
  Sex: Female

DRUGS (5)
  1. PRENATAL VITAMIN [Concomitant]
     Active Substance: VITAMINS
  2. MAKENA [Suspect]
     Active Substance: HYDROXYPROGESTERONE CAPROATE
     Indication: PREMATURE LABOUR
     Dosage: QUANTITY:1.1 ML MILLILITRE(S);?
     Route: 058
     Dates: start: 20180508, end: 20180508
  3. COLACE [Concomitant]
     Active Substance: DOCUSATE SODIUM
  4. TUMS [Concomitant]
     Active Substance: CALCIUM CARBONATE
  5. MAKENA [Suspect]
     Active Substance: HYDROXYPROGESTERONE CAPROATE
     Indication: PROPHYLAXIS
     Dosage: QUANTITY:1.1 ML MILLILITRE(S);?
     Route: 058
     Dates: start: 20180508, end: 20180508

REACTIONS (3)
  - Burning sensation [None]
  - Skin swelling [None]
  - Rash [None]

NARRATIVE: CASE EVENT DATE: 20180508
